FAERS Safety Report 26023349 (Version 1)
Quarter: 2025Q4

REPORT INFORMATION
  Report Type: Spontaneous
  Country: TR (occurrence: TR)
  Receive Date: 20251110
  Receipt Date: 20251110
  Transmission Date: 20260117
  Serious: Yes (Death, Other)
  Sender: PHARMOBEDIENT CONSULTING, LLC
  Company Number: TR-Pharmobedient-000431

PATIENT
  Age: 64 Year
  Sex: Female

DRUGS (4)
  1. SULFAMETHOXAZOLE AND TRIMETHOPRIM [Suspect]
     Active Substance: SULFAMETHOXAZOLE\TRIMETHOPRIM
     Indication: CNS ventriculitis
     Route: 042
  2. LINEZOLID [Suspect]
     Active Substance: LINEZOLID
     Indication: CNS ventriculitis
     Route: 042
  3. MEROPENEM [Suspect]
     Active Substance: MEROPENEM
     Indication: CNS ventriculitis
     Dosage: HIGH-DOSE
  4. AMIKACIN [Suspect]
     Active Substance: AMIKACIN
     Indication: CNS ventriculitis

REACTIONS (4)
  - Thrombocytopenia [Unknown]
  - Septic shock [Fatal]
  - Drug ineffective [Unknown]
  - Drug resistance [Unknown]
